FAERS Safety Report 11126161 (Version 1)
Quarter: 2015Q2

REPORT INFORMATION
  Report Type: Spontaneous
  Country: GB (occurrence: GB)
  Receive Date: 20150520
  Receipt Date: 20150520
  Transmission Date: 20150821
  Serious: Yes (Other)
  Sender: FDA-Public Use
  Company Number: PHHY2015GB057892

PATIENT
  Age: 48 Year
  Sex: Female
  Weight: 53.7 kg

DRUGS (1)
  1. METHOTREXATE [Suspect]
     Active Substance: METHOTREXATE
     Indication: SERONEGATIVE ARTHRITIS
     Dosage: 7.5 MG, UNK (7.5 TO 5MG)
     Route: 048
     Dates: start: 20140310, end: 20150311

REACTIONS (1)
  - Menopause [Not Recovered/Not Resolved]

NARRATIVE: CASE EVENT DATE: 20150401
